FAERS Safety Report 6714001-1 (Version None)
Quarter: 2010Q2

REPORT INFORMATION
  Report Type: 
  Country: None (occurrence: None)
  Receive Date: 20100506
  Receipt Date: 20100427
  Transmission Date: 20101027
  Serious: Yes (Hospitalization)
  Sender: FDA-Public Use
  Company Number: US-ALEXION-A201000463

PATIENT
  Sex: Female

DRUGS (1)
  1. SOLIRIS [Suspect]

REACTIONS (4)
  - DIARRHOEA [None]
  - NAUSEA [None]
  - PYREXIA [None]
  - VOMITING [None]
